FAERS Safety Report 24549755 (Version 3)
Quarter: 2024Q4

REPORT INFORMATION
  Report Type: Spontaneous
  Country: US (occurrence: US)
  Receive Date: 20241025
  Receipt Date: 20241226
  Transmission Date: 20250114
  Serious: No
  Sender: PFIZER
  Company Number: US-PFIZER INC-202400280811

PATIENT
  Age: 17 Year
  Sex: Male
  Weight: 96.62 kg

DRUGS (1)
  1. GENOTROPIN [Suspect]
     Active Substance: SOMATROPIN
     Indication: Growth hormone deficiency
     Dosage: AT NIGHT, 6 DAYS A WEEK
     Dates: start: 202402, end: 202410

REACTIONS (4)
  - Drug dose omission by device [Unknown]
  - Device use issue [Unknown]
  - Device mechanical issue [Unknown]
  - Device leakage [Unknown]
